FAERS Safety Report 14829655 (Version 1)
Quarter: 2018Q2

REPORT INFORMATION
  Report Type: Spontaneous
  Country: PT (occurrence: PT)
  Receive Date: 20180430
  Receipt Date: 20180430
  Transmission Date: 20180711
  Serious: Yes (Hospitalization)
  Sender: FDA-Public Use
  Company Number: PHHY2018PT071486

PATIENT
  Age: 39 Year
  Sex: Male

DRUGS (6)
  1. FLUCONAZOLE. [Suspect]
     Active Substance: FLUCONAZOLE
     Indication: ENDOCARDITIS CANDIDA
     Dosage: 400 MG, QD
     Route: 042
  2. AMOXICILLINA ACIDO CLAV. [Suspect]
     Active Substance: AMOXICILLIN\CLAVULANATE POTASSIUM
     Indication: ENDOCARDITIS CANDIDA
     Route: 065
  3. CIPROFLOXACIN. [Suspect]
     Active Substance: CIPROFLOXACIN
     Indication: ENDOCARDITIS CANDIDA
     Route: 065
  4. GENTAMICIN. [Suspect]
     Active Substance: GENTAMICIN
     Indication: ENDOCARDITIS CANDIDA
     Route: 065
  5. TRUVADA [Concomitant]
     Active Substance: EMTRICITABINE\TENOFOVIR DISOPROXIL FUMARATE
     Indication: HIV INFECTION
     Route: 065
  6. VANCOMYCIN [Suspect]
     Active Substance: VANCOMYCIN
     Indication: ENDOCARDITIS CANDIDA
     Route: 065

REACTIONS (5)
  - Cardiac failure [Recovered/Resolved]
  - Cardiac failure [None]
  - Condition aggravated [Recovered/Resolved]
  - Endocarditis candida [Recovered/Resolved]
  - Drug ineffective [Unknown]
